FAERS Safety Report 11052842 (Version 2)
Quarter: 2015Q2

REPORT INFORMATION
  Report Type: Spontaneous
  Country: FR (occurrence: FR)
  Receive Date: 20150421
  Receipt Date: 20150429
  Transmission Date: 20150821
  Serious: Yes (Other)
  Sender: FDA-Public Use
  Company Number: FR-GLAXOSMITHKLINE-FR2015GSK050067

PATIENT
  Age: 30 Year
  Sex: Female

DRUGS (4)
  1. LAMIVUDINE. [Suspect]
     Active Substance: LAMIVUDINE
     Indication: HIV TEST POSITIVE
  2. RITONAVIR. [Suspect]
     Active Substance: RITONAVIR
     Indication: HIV TEST POSITIVE
  3. DARUNAVIR [Suspect]
     Active Substance: DARUNAVIR
     Indication: HIV TEST POSITIVE
  4. ABACAVIR [Suspect]
     Active Substance: ABACAVIR
     Indication: HIV TEST POSITIVE

REACTIONS (5)
  - Hepatic enzyme increased [Unknown]
  - Exposure during pregnancy [Unknown]
  - Live birth [Unknown]
  - Cholestasis [Unknown]
  - Total bile acids increased [Unknown]
